FAERS Safety Report 16034927 (Version 3)
Quarter: 2020Q3

REPORT INFORMATION
  Report Type: Spontaneous
  Country: CA (occurrence: CA)
  Receive Date: 20190305
  Receipt Date: 20200715
  Transmission Date: 20201102
  Serious: Yes (Life-Threatening, Hospitalization)
  Sender: FDA-Public Use
  Company Number: CA-009507513-1903CAN000274

PATIENT
  Age: 35 Year
  Sex: Female
  Weight: 51 kg

DRUGS (4)
  1. ORGALUTRAN [Suspect]
     Active Substance: GANIRELIX ACETATE
     Indication: IN VITRO FERTILISATION
     Dosage: 250 MICOGRAM, 1 EVERY 1 DAYS (DOSAGE FORM PREVIOUSLY REPORTED AS SOLUTION SUBCUTANEOUS, 250 UG/0.5 M
     Route: 058
  2. GONAL?F [Suspect]
     Active Substance: FOLLITROPIN
     Indication: IN VITRO FERTILISATION
     Dosage: 300 UNITS, 1 EVERY 1 DAYS (DOSAGE FORM: LIQUID INTRAMUSCULAR, PREVIOUSLY REPORTED AS POWDER FOR SOLU
     Route: 058
  3. DECAPEPTYL (TRIPTORELIN PAMOATE) [Suspect]
     Active Substance: TRIPTORELIN PAMOATE
     Indication: IN VITRO FERTILISATION
     Dosage: 0.2 MILLIGRAM, ONCE (DOSAGE FORM: SOLUTION SUBCUTANEOUS)
     Route: 058
  4. MENOPUR [Suspect]
     Active Substance: FOLLITROPIN\LUTEINIZING HORMONE
     Indication: IN VITRO FERTILISATION
     Dosage: 150 INTERNATIONAL UNIT, 1 EVERY 1 DAYS (DOSAGE FORM: POWDER FOR SOLUTION SUBCUTANEOUS)
     Route: 058

REACTIONS (2)
  - Ventricular extrasystoles [Unknown]
  - Ventricular tachycardia [Unknown]
